APPROVED DRUG PRODUCT: NIPRIDE
Active Ingredient: SODIUM NITROPRUSSIDE
Strength: 50MG/VIAL
Dosage Form/Route: INJECTABLE;INJECTION
Application: N017546 | Product #001
Applicant: HOFFMANN LA ROCHE INC
Approved: Approved Prior to Jan 1, 1982 | RLD: No | RS: No | Type: DISCN